FAERS Safety Report 9015741 (Version 1)
Quarter: 2013Q1

REPORT INFORMATION
  Report Type: Spontaneous
  Country: IT (occurrence: None)
  Receive Date: 20130103
  Receipt Date: 20130103
  Transmission Date: 20140127
  Serious: Yes (Hospitalization)
  Sender: FDA-Public Use
  Company Number: AUR-APL-2012-05576

PATIENT
  Age: 77 Year
  Sex: Female

DRUGS (5)
  1. ATENOLOL (ATENOLOL) [Suspect]
     Indication: HYPERTENSION
     Dosage: 3 DOSE UNITS
     Route: 048
     Dates: start: 20120731, end: 20120801
  2. FEMARA (LETROZOLE) [Concomitant]
  3. ZOLOFT (SERTRALINE) [Concomitant]
  4. METFORMIN (METFORMIN) [Concomitant]
  5. MIRTAZAPINE (MIRTAZAPINE) [Concomitant]

REACTIONS (7)
  - Hypotension [None]
  - Bradycardia [None]
  - Tremor [None]
  - Vertigo [None]
  - Nausea [None]
  - Blood pressure increased [None]
  - Incorrect dose administered [None]
